FAERS Safety Report 7475153-1 (Version None)
Quarter: 2011Q2

REPORT INFORMATION
  Report Type: 
  Country: None (occurrence: None)
  Receive Date: 20110509
  Receipt Date: 20110509
  Transmission Date: 20111010
  Serious: Yes (Life-Threatening, Disabling)
  Sender: FDA-Public Use
  Company Number: None

PATIENT
  Age: 56 Year
  Sex: Male
  Weight: 102.0593 kg

DRUGS (2)
  1. LEVAQUIN [Suspect]
     Indication: RESPIRATORY DISORDER
     Dosage: 500MG 1 DAILY PO
     Route: 048
     Dates: start: 20070808, end: 20070822
  2. LEVAQUIN [Suspect]
     Indication: BRONCHITIS
     Dosage: 500MG 1 DAILY PO
     Route: 048
     Dates: start: 20070523, end: 20070602

REACTIONS (7)
  - AMYOTROPHIC LATERAL SCLEROSIS [None]
  - GAIT DISTURBANCE [None]
  - MUSCULAR WEAKNESS [None]
  - BLOOD CREATINE PHOSPHOKINASE INCREASED [None]
  - ACTIVITIES OF DAILY LIVING IMPAIRED [None]
  - RESPIRATORY DISORDER [None]
  - ARTHRALGIA [None]
